FAERS Safety Report 5217908-X (Version None)
Quarter: 2007Q1

REPORT INFORMATION
  Report Type: 
  Country: None (occurrence: None)
  Receive Date: 20070124
  Receipt Date: 20070110
  Transmission Date: 20070707
  Serious: Yes (Hospitalization)
  Sender: FDA-Public Use
  Company Number: FR-SHR-FR-2007-001476

PATIENT
  Age: 88 Year
  Sex: Female
  Weight: 58 kg

DRUGS (5)
  1. SOTALOL HYDROCHLORIDE [Suspect]
     Route: 048
     Dates: end: 20061204
  2. LEVOTHYROXINE SODIUM [Concomitant]
     Route: 048
  3. KARDEGIC                                /FRA/ [Concomitant]
     Indication: PROPHYLAXIS
     Route: 048
  4. BIPRETERAX [Concomitant]
     Indication: ESSENTIAL HYPERTENSION
     Route: 048
  5. PAROXETINE HCL [Concomitant]
     Route: 048

REACTIONS (10)
  - ATRIAL FIBRILLATION [None]
  - ELECTROCARDIOGRAM QT PROLONGED [None]
  - GENERAL PHYSICAL HEALTH DETERIORATION [None]
  - LOSS OF CONSCIOUSNESS [None]
  - MALAISE [None]
  - OVERDOSE [None]
  - PALLOR [None]
  - RENAL FAILURE ACUTE [None]
  - TORSADE DE POINTES [None]
  - VENTRICULAR EXTRASYSTOLES [None]
